FAERS Safety Report 23951928 (Version 1)
Quarter: 2024Q2

REPORT INFORMATION
  Report Type: Spontaneous
  Country: US (occurrence: None)
  Receive Date: 20240607
  Receipt Date: 20240607
  Transmission Date: 20240716
  Serious: Yes (Hospitalization)
  Sender: FDA-Public Use
  Company Number: None

PATIENT
  Age: 6 Year
  Sex: Male

DRUGS (3)
  1. NYVEPRIA [Suspect]
     Active Substance: PEGFILGRASTIM-APGF
     Indication: Product used for unknown indication
     Dosage: 5MG  Q 28 DAY IM?
     Route: 030
     Dates: start: 202406
  2. LEUKINE SDV [Concomitant]
  3. STERILE WATER FOR INJECTION [Concomitant]
     Active Substance: WATER

REACTIONS (1)
  - Chemotherapy [None]

NARRATIVE: CASE EVENT DATE: 20240603
